FAERS Safety Report 9511134 (Version 1)
Quarter: 2013Q3

REPORT INFORMATION
  Report Type: Spontaneous
  Country: US (occurrence: None)
  Receive Date: 20130905
  Receipt Date: 20130905
  Transmission Date: 20140515
  Serious: Yes (Hospitalization)
  Sender: FDA-Public Use
  Company Number: 2013AP007711

PATIENT
  Age: 56 Year
  Sex: Male

DRUGS (6)
  1. LISINOPRIL TABLETS [Suspect]
     Indication: OVERDOSE
  2. INSULIN GLARGINE [Suspect]
     Indication: OVERDOSE
  3. DIPHENHYDRAMINE [Suspect]
     Indication: OVERDOSE
  4. METOPROLOL [Suspect]
     Indication: OVERDOSE
     Route: 048
  5. ISOSORBIDE DINITRATE [Suspect]
     Indication: OVERDOSE
  6. FUROSEMIDE [Suspect]
     Indication: OVERDOSE

REACTIONS (3)
  - Suicide attempt [None]
  - Hypotension [None]
  - Intentional overdose [None]
